FAERS Safety Report 7639144-X (Version None)
Quarter: 2011Q3

REPORT INFORMATION
  Report Type: 
  Country: None (occurrence: None)
  Receive Date: 20110727
  Receipt Date: 20110708
  Transmission Date: 20111222
  Serious: Yes (Life-Threatening, Hospitalization, Other)
  Sender: FDA-Public Use
  Company Number: CO-MEDIMMUNE-MEDI-0013345

PATIENT
  Age: 53 Year
  Sex: Male

DRUGS (7)
  1. CELECOXIB [Concomitant]
  2. PREDNISOLONE [Concomitant]
  3. OMEPRAZOLE [Concomitant]
  4. LEVOTHYROXINE SODIUM [Concomitant]
  5. RADIOTHERAPY [Concomitant]
     Dates: start: 20110608
  6. ETHYOL [Suspect]
     Indication: PROPHYLAXIS
     Route: 058
     Dates: start: 20110608
  7. ALPRAZOLAM [Concomitant]

REACTIONS (7)
  - LEUKOCYTOSIS [None]
  - HYPOTHERMIA [None]
  - PYREXIA [None]
  - ANAPHYLACTIC SHOCK [None]
  - HYPOTENSION [None]
  - RASH [None]
  - ANXIETY [None]
